FAERS Safety Report 4451714-9 (Version None)
Quarter: 2004Q3

REPORT INFORMATION
  Report Type: 
  Country: None (occurrence: None)
  Receive Date: 20040915
  Receipt Date: 20040901
  Transmission Date: 20050211
  Serious: Yes (Death)
  Sender: FDA-Public Use
  Company Number: 2004RL000099

PATIENT
  Age: 16 Year
  Sex: Female
  Weight: 73.0291 kg

DRUGS (2)
  1. RYTHMOL [Suspect]
     Indication: DRUG USE FOR UNKNOWN INDICATION
     Dosage: 18000 MG;X1;PO
     Route: 048
     Dates: start: 20031201, end: 20031201
  2. EPHEDRINE SUL CAP [Concomitant]

REACTIONS (7)
  - CARDIAC ARREST [None]
  - CONVULSION [None]
  - DEPRESSED LEVEL OF CONSCIOUSNESS [None]
  - FEELING ABNORMAL [None]
  - INTENTIONAL OVERDOSE [None]
  - LYMPHOCYTIC INFILTRATION [None]
  - MENINGITIS VIRAL [None]
